FAERS Safety Report 24905214 (Version 1)
Quarter: 2025Q1

REPORT INFORMATION
  Report Type: Spontaneous
  Country: US (occurrence: US)
  Receive Date: 20250130
  Receipt Date: 20250130
  Transmission Date: 20250408
  Serious: No
  Sender: MAYNE
  Company Number: US-MAYNE PHARMA-2024MYN000093

PATIENT

DRUGS (1)
  1. RHOFADE [Suspect]
     Active Substance: OXYMETAZOLINE HYDROCHLORIDE
     Indication: Rosacea
     Route: 065

REACTIONS (3)
  - Erythema [Unknown]
  - Drug ineffective [Unknown]
  - Product packaging issue [Unknown]
